FAERS Safety Report 11937819 (Version 3)
Quarter: 2016Q1

REPORT INFORMATION
  Report Type: Spontaneous
  Country: BR (occurrence: BR)
  Receive Date: 20160122
  Receipt Date: 20160311
  Transmission Date: 20160526
  Serious: Yes (Hospitalization, Other)
  Sender: FDA-Public Use
  Company Number: BR-PFIZER INC-2016026667

PATIENT
  Age: 45 Year
  Sex: Female
  Weight: 72 kg

DRUGS (11)
  1. FRONTAL [Suspect]
     Active Substance: ALPRAZOLAM
     Indication: ANXIETY
     Dosage: 1 TABLET OF 1 MG
     Route: 048
     Dates: start: 2012, end: 2014
  2. FRONTAL [Suspect]
     Active Substance: ALPRAZOLAM
     Indication: BRUXISM
     Dosage: 2 MG, 1 TABLET AT NIGHT
     Route: 048
     Dates: start: 2014
  3. PONDERA [Concomitant]
     Active Substance: PAROXETINE HYDROCHLORIDE
     Indication: SYNCOPE
     Dosage: 10 MG, 1 TABLET AT NIGHT
     Route: 048
  4. ZOLPIDEM [Concomitant]
     Active Substance: ZOLPIDEM\ZOLPIDEM TARTRATE
     Indication: HYPNOTHERAPY
     Dosage: 10 MG, 1 TABLET AT NIGHT
  5. RUSOVAS [Concomitant]
     Active Substance: ROSUVASTATIN
     Indication: CAROTID ARTERY DISEASE
     Dosage: 5 MG, 1 TABLET AT NOON
     Route: 048
  6. ADAPEN [Concomitant]
     Indication: BLOOD PRESSURE MEASUREMENT
     Dosage: 1.5 MG, 1 TABLET IN THE MORNING
     Route: 048
  7. LANSOPRAZOLE. [Suspect]
     Active Substance: LANSOPRAZOLE
     Indication: GASTROINTESTINAL BACTERIAL INFECTION
     Dosage: UNK
     Dates: start: 201510
  8. VENLIFT [Concomitant]
     Active Substance: VENLAFAXINE HYDROCHLORIDE
     Indication: ANXIETY
     Dosage: 75 MG, 1 TABLET IN THE MORNING
     Route: 048
  9. DAFLON [Concomitant]
     Active Substance: DIOSMIN\HESPERIDIN
     Indication: PERIPHERAL VASCULAR DISORDER
     Dosage: 2000 MG TAKE 1 TABLET
     Route: 048
  10. GINERA [Concomitant]
     Indication: CONTRACEPTION
     Dosage: 1 TABLET AT NIGHT
     Route: 048
  11. CALTREN [Concomitant]
     Active Substance: NITRENDIPINE
     Indication: BLOOD PRESSURE MEASUREMENT
     Dosage: 20 MG, 1 TABLET AT NIGHT
     Route: 048

REACTIONS (2)
  - Cardiac arrest [Recovered/Resolved]
  - Anaphylactic shock [Recovered/Resolved]

NARRATIVE: CASE EVENT DATE: 20151027
